FAERS Safety Report 25222468 (Version 1)
Quarter: 2025Q2

REPORT INFORMATION
  Report Type: Report from Study
  Country: US (occurrence: US)
  Receive Date: 20250421
  Receipt Date: 20250421
  Transmission Date: 20250716
  Serious: Yes (Hospitalization)
  Sender: ABBVIE
  Company Number: US-ABBVIE-6239722

PATIENT
  Age: 60 Year
  Sex: Male

DRUGS (1)
  1. SKYRIZI [Suspect]
     Active Substance: RISANKIZUMAB-RZAA
     Indication: Psoriasis
     Dosage: STRENGTH: 150 MG/ML
     Route: 058
     Dates: start: 202104, end: 20250307

REACTIONS (5)
  - Streptococcal infection [Unknown]
  - Pulmonary embolism [Unknown]
  - Cardiac ventricular thrombosis [Unknown]
  - Pneumonia [Unknown]
  - Thrombosis [Unknown]

NARRATIVE: CASE EVENT DATE: 20250101
